FAERS Safety Report 19038752 (Version 4)
Quarter: 2021Q3

REPORT INFORMATION
  Report Type: Spontaneous
  Country: GB (occurrence: GB)
  Receive Date: 20210322
  Receipt Date: 20210916
  Transmission Date: 20211014
  Serious: Yes (Hospitalization)
  Sender: FDA-Public Use
  Company Number: GB-DRREDDYS-GER/UKI/21/0133223

PATIENT
  Age: 24 Year
  Sex: Male

DRUGS (27)
  1. CLONAZEPAM. [Concomitant]
     Active Substance: CLONAZEPAM
     Route: 048
  2. SODIUM VALPROATE [Concomitant]
     Active Substance: VALPROATE SODIUM
  3. SODIUM VALPROATE [Concomitant]
     Active Substance: VALPROATE SODIUM
     Dosage: 18.75 MMOL, ONCE PER DAY (18.75 MILLIMOLE, AM)
     Route: 065
  4. OLANZAPINE. [Suspect]
     Active Substance: OLANZAPINE
     Indication: PRODUCT USED FOR UNKNOWN INDICATION
     Route: 065
     Dates: start: 201811
  5. CLOZARIL [Suspect]
     Active Substance: CLOZAPINE
     Route: 048
     Dates: start: 20191120, end: 20191202
  6. LITHIUM CITRATE. [Concomitant]
     Active Substance: LITHIUM CITRATE
     Route: 005
  7. LITHIUM CITRATE. [Concomitant]
     Active Substance: LITHIUM CITRATE
     Route: 005
  8. LITHIUM CITRATE. [Concomitant]
     Active Substance: LITHIUM CITRATE
     Route: 005
  9. QUETIAPINE. [Concomitant]
     Active Substance: QUETIAPINE
     Route: 065
  10. SODIUM VALPROATE [Concomitant]
     Active Substance: VALPROATE SODIUM
     Indication: PRODUCT USED FOR UNKNOWN INDICATION
     Route: 065
  11. LITHIUM CITRATE. [Concomitant]
     Active Substance: LITHIUM CITRATE
     Indication: PRODUCT USED FOR UNKNOWN INDICATION
     Route: 005
  12. LITHIUM CITRATE. [Concomitant]
     Active Substance: LITHIUM CITRATE
     Route: 005
  13. QUETIAPINE. [Concomitant]
     Active Substance: QUETIAPINE
     Route: 065
  14. SODIUM VALPROATE [Concomitant]
     Active Substance: VALPROATE SODIUM
  15. CLONAZEPAM. [Concomitant]
     Active Substance: CLONAZEPAM
     Indication: PRODUCT USED FOR UNKNOWN INDICATION
     Route: 048
  16. LITHIUM CITRATE. [Concomitant]
     Active Substance: LITHIUM CITRATE
     Route: 005
  17. CLOZARIL [Suspect]
     Active Substance: CLOZAPINE
     Route: 048
     Dates: start: 20181115
  18. LITHIUM CITRATE. [Concomitant]
     Active Substance: LITHIUM CITRATE
     Route: 005
  19. QUETIAPINE. [Concomitant]
     Active Substance: QUETIAPINE
     Indication: PRODUCT USED FOR UNKNOWN INDICATION
     Route: 065
  20. SODIUM VALPROATE [Concomitant]
     Active Substance: VALPROATE SODIUM
     Route: 065
  21. CLOZARIL [Suspect]
     Active Substance: CLOZAPINE
     Indication: SCHIZOPHRENIA
     Route: 048
     Dates: start: 20181212, end: 20181231
  22. LITHIUM CITRATE. [Concomitant]
     Active Substance: LITHIUM CITRATE
     Route: 005
  23. LITHIUM CITRATE. [Concomitant]
     Active Substance: LITHIUM CITRATE
     Route: 005
  24. QUETIAPINE. [Concomitant]
     Active Substance: QUETIAPINE
     Route: 065
  25. SODIUM VALPROATE [Concomitant]
     Active Substance: VALPROATE SODIUM
     Dosage: 25 MILLIMOLE, PM
     Route: 065
  26. LITHIUM CITRATE. [Concomitant]
     Active Substance: LITHIUM CITRATE
     Route: 005
  27. QUETIAPINE. [Concomitant]
     Active Substance: QUETIAPINE

REACTIONS (9)
  - Abnormal behaviour [Unknown]
  - Aggression [Unknown]
  - Neutrophil count increased [Recovered/Resolved]
  - Neutropenia [Recovered/Resolved]
  - Drug ineffective [Unknown]
  - White blood cell count decreased [Recovered/Resolved]
  - Malaise [Unknown]
  - Eosinophilia [Recovered/Resolved]
  - White blood cell count increased [Recovered/Resolved]

NARRATIVE: CASE EVENT DATE: 201811
